FAERS Safety Report 4638131-3 (Version None)
Quarter: 2005Q2

REPORT INFORMATION
  Report Type: 
  Country: None (occurrence: None)
  Receive Date: 20050418
  Receipt Date: 20050407
  Transmission Date: 20051028
  Serious: Yes (Hospitalization)
  Sender: FDA-Public Use
  Company Number: PHRM2005FR01267

PATIENT
  Age: 63 Year
  Sex: Male

DRUGS (4)
  1. VOLTAREN [Suspect]
     Route: 048
     Dates: end: 20050131
  2. MOPRAL [Suspect]
     Dates: end: 20050131
  3. EFFERALGAN CODEINE [Suspect]
     Route: 048
     Dates: end: 20050131
  4. TAHOR [Suspect]
     Dosage: 1 DF, QD
     Route: 048
     Dates: end: 20050131

REACTIONS (1)
  - HYPOKALAEMIA [None]
